FAERS Safety Report 5058030-5 (Version None)
Quarter: 2006Q3

REPORT INFORMATION
  Report Type: 
  Country: None (occurrence: None)
  Receive Date: 20060721
  Receipt Date: 20060519
  Transmission Date: 20061208
  Serious: No
  Sender: FDA-Public Use
  Company Number: US-GLAXOSMITHKLINE-A0606349A

PATIENT
  Age: 51 Year
  Sex: Female

DRUGS (3)
  1. AVANDIA [Suspect]
     Dosage: 4MG PER DAY
     Route: 048
     Dates: start: 20040101
  2. GLIPIZIDE [Concomitant]
  3. BENADRYL [Concomitant]
     Dosage: 50MGM UNKNOWN

REACTIONS (4)
  - ERYTHEMA [None]
  - HYPOAESTHESIA FACIAL [None]
  - SWELLING FACE [None]
  - VISUAL DISTURBANCE [None]
